FAERS Safety Report 8380465-3 (Version None)
Quarter: 2012Q2

REPORT INFORMATION
  Report Type: 
  Country: None (occurrence: None)
  Receive Date: 20120523
  Receipt Date: 20120517
  Transmission Date: 20120825
  Serious: Yes (Hospitalization)
  Sender: FDA-Public Use
  Company Number: US-GLAXOSMITHKLINE-A0978613A

PATIENT
  Age: 50 Year

DRUGS (1)
  1. FLOLAN [Suspect]
     Indication: PRODUCT USED FOR UNKNOWN INDICATION
     Dosage: 46NGKM CONTINUOUS
     Route: 065
     Dates: start: 20050318

REACTIONS (2)
  - LUNG TRANSPLANT [None]
  - BRONCHIAL OBSTRUCTION [None]
